FAERS Safety Report 8729743 (Version 4)
Quarter: 2012Q4

REPORT INFORMATION
  Report Type: Report from Study
  Country: FR (occurrence: FR)
  Receive Date: 20120817
  Receipt Date: 20121122
  Transmission Date: 20130627
  Serious: Yes (Hospitalization)
  Sender: FDA-Public Use
  Company Number: FR-ROCHE-1100023

PATIENT
  Age: 57 Year
  Sex: Female
  Weight: 56 kg

DRUGS (8)
  1. BLINDED PERTUZUMAB [Suspect]
     Indication: BREAST CANCER
     Dosage: Date of last dose rpior to sae: 01/Aug/2012
     Route: 042
     Dates: start: 20120801
  2. TRASTUZUMAB [Suspect]
     Indication: BREAST CANCER
     Dosage: Date of last dose prior to SAE: 01/Aug/2012
     Route: 042
     Dates: start: 20120801
  3. DOCETAXEL [Suspect]
     Indication: BREAST CANCER
     Dosage: Date of last dose prior to SAE : 01/Aug/2012
     Route: 042
     Dates: start: 20120801
  4. FLUCONAZOLE [Concomitant]
     Route: 065
     Dates: start: 20120807
  5. TRAMADOL [Concomitant]
     Route: 065
     Dates: start: 20120806
  6. PARACETAMOL [Concomitant]
     Route: 065
     Dates: start: 20120808
  7. ZOPHREN [Concomitant]
     Route: 065
     Dates: start: 20120530
  8. SOLU-MEDROL [Concomitant]
     Route: 065
     Dates: start: 20120530

REACTIONS (2)
  - Febrile neutropenia [Recovered/Resolved]
  - Mucosal inflammation [Recovered/Resolved]
